FAERS Safety Report 12717350 (Version 1)
Quarter: 2016Q3

REPORT INFORMATION
  Report Type: Spontaneous
  Country: US (occurrence: US)
  Receive Date: 20160906
  Receipt Date: 20160906
  Transmission Date: 20161109
  Serious: Yes (Other)
  Sender: FDA-Public Use
  Company Number: None

PATIENT
  Age: 24 Year
  Sex: Female
  Weight: 81 kg

DRUGS (1)
  1. HYDROXYZINE [Suspect]
     Active Substance: HYDROXYZINE\HYDROXYZINE HYDROCHLORIDE
     Indication: INSOMNIA
     Route: 048
     Dates: start: 20160826, end: 20160827

REACTIONS (3)
  - Anger [None]
  - Violence-related symptom [None]
  - Thinking abnormal [None]

NARRATIVE: CASE EVENT DATE: 20160827
